FAERS Safety Report 12907972 (Version 1)
Quarter: 2016Q4

REPORT INFORMATION
  Report Type: Spontaneous
  Country: US (occurrence: US)
  Receive Date: 20161103
  Receipt Date: 20161103
  Transmission Date: 20170207
  Serious: Yes (Other)
  Sender: FDA-Public Use
  Company Number: US-MYLANLABS-2016M1046606

PATIENT

DRUGS (4)
  1. DEXAMETHASONE. [Suspect]
     Active Substance: DEXAMETHASONE
     Indication: CHORIOCARCINOMA
     Route: 065
  2. CISPLATIN. [Suspect]
     Active Substance: CISPLATIN
     Indication: CHORIOCARCINOMA
     Dosage: 0.7 MG/KG DAILY FOR 5 DAYS FOR 5 CYLES IN 21 DAYS INTERVAL
     Route: 065
  3. BLEOMYCIN [Suspect]
     Active Substance: BLEOMYCIN SULFATE
     Indication: CHORIOCARCINOMA
     Dosage: 2 UNITS, SINGLE DOSE FOR 5 CYLES IN 21 DAYS INTERVAL
     Route: 065
  4. ETOPOSIDE. [Suspect]
     Active Substance: ETOPOSIDE
     Indication: CHORIOCARCINOMA
     Dosage: 3 MG/KG DAILY FOR 5 DAYS FOR 5 CYLES IN 21 DAYS INTERVAL
     Route: 065

REACTIONS (3)
  - Hypoglycaemia [Unknown]
  - Hepatic haemorrhage [Unknown]
  - Adrenal insufficiency [Recovered/Resolved]
